FAERS Safety Report 16564702 (Version 1)
Quarter: 2019Q3

REPORT INFORMATION
  Report Type: Spontaneous
  Country: US (occurrence: US)
  Receive Date: 20190712
  Receipt Date: 20190712
  Transmission Date: 20191004
  Serious: No
  Sender: FDA-Public Use
  Company Number: US-MACLEODS PHARMACEUTICALS US LTD-MAC2019021134

PATIENT

DRUGS (1)
  1. RIZATRIPTAN TABLET 10MG [Suspect]
     Active Substance: RIZATRIPTAN
     Indication: PRODUCT USED FOR UNKNOWN INDICATION
     Dosage: 10 MILLIGRAM TABLET
     Route: 048

REACTIONS (1)
  - Expired product administered [Unknown]
